FAERS Safety Report 4579818-0 (Version None)
Quarter: 2005Q1

REPORT INFORMATION
  Report Type: 
  Country: None (occurrence: None)
  Receive Date: 20050210
  Receipt Date: 20050128
  Transmission Date: 20050727
  Serious: Yes (Hospitalization, Other)
  Sender: FDA-Public Use
  Company Number: 2005014864

PATIENT
  Sex: Female

DRUGS (6)
  1. VIAGRA [Suspect]
     Indication: PULMONARY HYPERTENSION
     Dosage: 50 MG (50 MG, 1 IN 1 D), ORAL
     Route: 048
     Dates: start: 20040202, end: 20041115
  2. LOSARTAN (LOSARTAN) [Concomitant]
  3. PENTOXIFYLLINE [Concomitant]
  4. PREDNISONE [Concomitant]
  5. FEMILAR (CYPROTERONE ACETATE, ESTRADIOL VALERATE) [Concomitant]
  6. OS-CAL (CALCIUM, ERGOCALCIFEROL) [Concomitant]

REACTIONS (4)
  - FATIGUE [None]
  - PULMONARY ARTERIAL PRESSURE INCREASED [None]
  - TACHYCARDIA [None]
  - TREATMENT NONCOMPLIANCE [None]
